FAERS Safety Report 8890401 (Version 2)
Quarter: 2013Q1

REPORT INFORMATION
  Report Type: Spontaneous
  Country: AU (occurrence: AU)
  Receive Date: 20121107
  Receipt Date: 20130124
  Transmission Date: 20140127
  Serious: No
  Sender: FDA-Public Use
  Company Number: AU-SHIRE-SPV1-2012-00937

PATIENT
  Sex: Female

DRUGS (1)
  1. MEZAVANT [Suspect]
     Indication: COLITIS ULCERATIVE
     Dosage: 1 DF, 1X/DAY:QD
     Route: 048
     Dates: start: 201210

REACTIONS (1)
  - Hypersensitivity [Recovered/Resolved]
